FAERS Safety Report 15305615 (Version 1)
Quarter: 2018Q3

REPORT INFORMATION
  Report Type: Spontaneous
  Country: FR (occurrence: FR)
  Receive Date: 20180822
  Receipt Date: 20180822
  Transmission Date: 20181010
  Serious: Yes (Hospitalization)
  Sender: FDA-Public Use
  Company Number: FR-ORION CORPORATION ORION PHARMA-18_00004207

PATIENT
  Age: 64 Year
  Sex: Male
  Weight: 88 kg

DRUGS (4)
  1. MODOPAR L.P. 125 [Concomitant]
     Indication: PARKINSON^S DISEASE
     Dosage: STRENGTH: 100/25 MG
     Route: 048
  2. AZILECT [Concomitant]
     Active Substance: RASAGILINE MESYLATE
     Indication: PARKINSON^S DISEASE
     Dosage: STRENGTH: 1 MG
     Route: 048
  3. SIFROL [Concomitant]
     Active Substance: PRAMIPEXOLE
     Indication: PARKINSON^S DISEASE
     Dosage: STRENGTH: 1.05 MG
     Route: 048
  4. STALEVO [Suspect]
     Active Substance: CARBIDOPA\ENTACAPONE\LEVODOPA
     Indication: PARKINSON^S DISEASE
     Dosage: STRENGTH: 75/18.75/200 MG
     Route: 048
     Dates: start: 20180305

REACTIONS (1)
  - Pericardial effusion [Recovered/Resolved]

NARRATIVE: CASE EVENT DATE: 20180718
